FAERS Safety Report 5329770-5 (Version None)
Quarter: 2007Q2

REPORT INFORMATION
  Report Type: 
  Country: None (occurrence: None)
  Receive Date: 20070521
  Receipt Date: 20070509
  Transmission Date: 20071010
  Serious: Yes (Hospitalization, Other)
  Sender: FDA-Public Use
  Company Number: FR-AMGEN-UK217905

PATIENT
  Age: 36 Year
  Sex: Female

DRUGS (6)
  1. MIMPARA [Suspect]
     Indication: HYPERPARATHYROIDISM SECONDARY
     Route: 048
  2. PROGRAF [Concomitant]
     Route: 065
     Dates: start: 20060523
  3. CELLCEPT [Concomitant]
     Route: 065
     Dates: start: 20060523
  4. CORTANCYL [Concomitant]
     Route: 065
     Dates: start: 20060523
  5. NEXIUM [Concomitant]
     Route: 065
     Dates: end: 20061116
  6. AMLOR [Concomitant]
     Route: 065
     Dates: end: 20061116

REACTIONS (1)
  - HEPATITIS CHOLESTATIC [None]
